FAERS Safety Report 24129617 (Version 1)
Quarter: 2024Q3

REPORT INFORMATION
  Report Type: Report from Study
  Country: US (occurrence: US)
  Receive Date: 20240724
  Receipt Date: 20240724
  Transmission Date: 20241017
  Serious: Yes (Other)
  Sender: ABBVIE
  Company Number: US-ABBVIE-5844886

PATIENT
  Sex: Female

DRUGS (1)
  1. RINVOQ [Suspect]
     Active Substance: UPADACITINIB
     Indication: Crohn^s disease
     Route: 048
     Dates: start: 20230516

REACTIONS (7)
  - Systemic lupus erythematosus [Unknown]
  - Carpal tunnel syndrome [Unknown]
  - Intervertebral disc protrusion [Unknown]
  - Abdominal pain upper [Unknown]
  - Constipation [Unknown]
  - Rash papular [Unknown]
  - Rheumatoid arthritis [Unknown]
